FAERS Safety Report 5637842-0 (Version None)
Quarter: 2008Q1

REPORT INFORMATION
  Report Type: 
  Country: None (occurrence: None)
  Receive Date: 20080220
  Receipt Date: 20080207
  Transmission Date: 20080703
  Serious: No
  Sender: FDA-Public Use
  Company Number: 002#2#2008-00058

PATIENT
  Age: 77 Year
  Sex: Male
  Weight: 66 kg

DRUGS (8)
  1. NEUPRO [Suspect]
     Indication: PARKINSON'S DISEASE
     Dosage: SEE IMAGE
     Route: 062
     Dates: start: 20070901, end: 20071009
  2. NEUPRO [Suspect]
     Indication: PARKINSON'S DISEASE
     Dosage: SEE IMAGE
     Route: 062
     Dates: start: 20071010, end: 20071015
  3. NEUPRO [Suspect]
     Indication: PARKINSON'S DISEASE
     Dosage: SEE IMAGE
     Route: 062
     Dates: start: 20071017, end: 20080109
  4. NEUPRO [Suspect]
     Indication: PARKINSON'S DISEASE
     Dosage: SEE IMAGE
     Route: 062
     Dates: start: 20080110
  5. ACIPHEX [Concomitant]
  6. PLAVIX [Concomitant]
  7. FLOMAX [Concomitant]
  8. VERAPAMIL [Concomitant]

REACTIONS (7)
  - APPLICATION SITE PRURITUS [None]
  - APPLICATION SITE RASH [None]
  - ASTHENIA [None]
  - CONFUSIONAL STATE [None]
  - DECREASED ACTIVITY [None]
  - HALLUCINATION [None]
  - THERAPY REGIMEN CHANGED [None]
